FAERS Safety Report 9125929 (Version 1)
Quarter: 2013Q1

REPORT INFORMATION
  Report Type: Spontaneous
  Country: FR (occurrence: FR)
  Receive Date: 20130121
  Receipt Date: 20130121
  Transmission Date: 20140127
  Serious: Yes (Hospitalization)
  Sender: FDA-Public Use
  Company Number: FR-SANOFI-AVENTIS-2013SA004305

PATIENT
  Age: 86 Year
  Sex: Female

DRUGS (8)
  1. CELECTOL [Suspect]
     Indication: HYPERTENSION
     Route: 048
  2. LASILIX [Suspect]
     Indication: HYPERTENSION
     Route: 048
  3. PREVISCAN [Suspect]
     Indication: PRODUCT USED FOR UNKNOWN INDICATION
     Route: 048
  4. PREVISCAN [Suspect]
     Indication: PRODUCT USED FOR UNKNOWN INDICATION
     Route: 065
  5. TRIATEC [Concomitant]
     Indication: HYPERTENSION
     Dosage: STRENGTH; 5 MG
     Route: 048
  6. LEVOTHYROX [Concomitant]
     Indication: HYPOTHYROIDISM
     Route: 048
  7. EUPANTOL [Concomitant]
     Dosage: STRENGTH; 40 MG
     Route: 048
  8. ALLOPURINOL [Concomitant]
     Dosage: STRENGTH; 100 MG
     Route: 048

REACTIONS (1)
  - Melaena [Recovering/Resolving]
